FAERS Safety Report 22275391 (Version 1)
Quarter: 2023Q2

REPORT INFORMATION
  Report Type: Spontaneous
  Country: US (occurrence: US)
  Receive Date: 20230502
  Receipt Date: 20230502
  Transmission Date: 20230721
  Serious: No
  Sender: FDA-Public Use
  Company Number: US-PFIZER INC-PV202300075690

PATIENT
  Age: 73 Year
  Sex: Male

DRUGS (1)
  1. LINCOMYCIN HYDROCHLORIDE [Suspect]
     Active Substance: LINCOMYCIN HYDROCHLORIDE
     Dosage: UNK

REACTIONS (1)
  - Drug hypersensitivity [Unknown]
